FAERS Safety Report 4820934-3 (Version None)
Quarter: 2005Q4

REPORT INFORMATION
  Report Type: 
  Country: None (occurrence: None)
  Receive Date: 20051104
  Receipt Date: 20050414
  Transmission Date: 20060501
  Serious: Yes (Death, Hospitalization)
  Sender: FDA-Public Use
  Company Number: US-MERCK-0504USA03099

PATIENT
  Age: 60 Year
  Sex: Male

DRUGS (4)
  1. VIOXX [Suspect]
     Indication: OSTEOARTHRITIS
     Route: 048
     Dates: start: 20000101, end: 20031108
  2. VIOXX [Suspect]
     Route: 048
     Dates: start: 20000101, end: 20031108
  3. ASPIRIN [Concomitant]
     Route: 065
     Dates: start: 20030101, end: 20030101
  4. TYLENOL (CAPLET) [Concomitant]
     Route: 065

REACTIONS (4)
  - ANOXIC ENCEPHALOPATHY [None]
  - CARDIAC ARREST [None]
  - CORONARY ARTERY DISEASE [None]
  - VENTRICULAR FIBRILLATION [None]
